APPROVED DRUG PRODUCT: INDOMETHACIN
Active Ingredient: INDOMETHACIN
Strength: 50MG
Dosage Form/Route: SUPPOSITORY;RECTAL
Application: A216184 | Product #001 | TE Code: AB
Applicant: ZYDUS LIFESCIENCES GLOBAL FZE
Approved: Aug 2, 2023 | RLD: No | RS: No | Type: RX